FAERS Safety Report 11128172 (Version 5)
Quarter: 2015Q2

REPORT INFORMATION
  Report Type: Spontaneous
  Country: US (occurrence: US)
  Receive Date: 20150521
  Receipt Date: 20150626
  Transmission Date: 20150821
  Serious: Yes (Other)
  Sender: FDA-Public Use
  Company Number: US-ASTRAZENECA-2014SE70159

PATIENT
  Age: 78 Year
  Sex: Male
  Weight: 105.5 kg

DRUGS (45)
  1. TEMAZEPAM. [Concomitant]
     Active Substance: TEMAZEPAM
     Route: 048
  2. PYRIDOXINE [Concomitant]
     Active Substance: PYRIDOXINE
     Route: 048
     Dates: start: 20090212
  3. LYRICA [Concomitant]
     Active Substance: PREGABALIN
     Route: 048
     Dates: start: 20150428
  4. BYETTA [Suspect]
     Active Substance: EXENATIDE
     Dosage: UNK
     Route: 065
     Dates: start: 20070430, end: 20081130
  5. BYETTA [Suspect]
     Active Substance: EXENATIDE
     Route: 065
     Dates: start: 20070430
  6. ASCORBIC ACID. [Concomitant]
     Active Substance: ASCORBIC ACID
     Route: 048
     Dates: start: 20090212
  7. HUMULIN 70/30 [Concomitant]
     Active Substance: INSULIN HUMAN
     Dates: start: 20060717
  8. ZYRTEC [Concomitant]
     Active Substance: CETIRIZINE HYDROCHLORIDE
     Route: 048
     Dates: start: 20150428
  9. ASPIRIN. [Concomitant]
     Active Substance: ASPIRIN
     Route: 048
     Dates: start: 20090212
  10. VITAMIN B12 [Concomitant]
     Active Substance: CYANOCOBALAMIN
     Route: 048
     Dates: start: 20110112
  11. PREDNISONE. [Concomitant]
     Active Substance: PREDNISONE
     Route: 048
     Dates: start: 20150428
  12. SOTALOL HCL [Concomitant]
     Active Substance: SOTALOL
     Route: 048
     Dates: start: 20150428
  13. BYETTA [Suspect]
     Active Substance: EXENATIDE
     Route: 058
     Dates: start: 20080516
  14. CRESTOR [Concomitant]
     Active Substance: ROSUVASTATIN CALCIUM
     Route: 048
  15. AMARYL [Concomitant]
     Active Substance: GLIMEPIRIDE
     Route: 048
     Dates: start: 20080516
  16. FOLIC ACID. [Concomitant]
     Active Substance: FOLIC ACID
     Route: 048
     Dates: start: 20090212
  17. FINASTERIDE. [Concomitant]
     Active Substance: FINASTERIDE
     Route: 048
     Dates: start: 20110113
  18. TRAMADOL HCL [Concomitant]
     Active Substance: TRAMADOL HYDROCHLORIDE
     Route: 048
     Dates: start: 20150428
  19. BYETTA [Suspect]
     Active Substance: EXENATIDE
     Route: 058
     Dates: start: 20090223
  20. TESTOSTERONE. [Concomitant]
     Active Substance: TESTOSTERONE
     Dosage: EVERY DAY
     Dates: start: 20090212
  21. LIPITOR [Concomitant]
     Active Substance: ATORVASTATIN CALCIUM
     Dates: start: 20060717
  22. OMEPRAZOLE. [Concomitant]
     Active Substance: OMEPRAZOLE
     Route: 048
     Dates: start: 20110113
  23. ATENOLOL. [Concomitant]
     Active Substance: ATENOLOL
     Route: 048
     Dates: start: 20110113
  24. VITAMIN B6 [Concomitant]
     Active Substance: PYRIDOXINE HYDROCHLORIDE
     Route: 048
     Dates: start: 20110112
  25. XARELTO [Concomitant]
     Active Substance: RIVAROXABAN
     Route: 048
     Dates: start: 20150428
  26. LOVENOX [Concomitant]
     Active Substance: ENOXAPARIN SODIUM
     Route: 065
  27. NOVOLOG [Concomitant]
     Active Substance: INSULIN ASPART
     Dosage: INJECT 20 UNITS SUBCUTANEOUSLY 2 TIMES A DAY
  28. MULTIVITAMIN [Concomitant]
     Active Substance: VITAMINS
     Dosage: EVERY DAY
     Route: 048
     Dates: start: 20090212
  29. AVANDIA [Concomitant]
     Active Substance: ROSIGLITAZONE MALEATE
     Dates: start: 20060717
  30. LORCET PLUS [Concomitant]
     Active Substance: ACETAMINOPHEN\HYDROCODONE BITARTRATE
     Dosage: 7.5 MG-650 MG
     Route: 048
     Dates: start: 20110113
  31. LANTUS SOLOSTAR [Concomitant]
     Active Substance: INSULIN GLARGINE
     Dosage: 300 UNIT/ 3 ML
     Route: 058
     Dates: start: 20110113
  32. TERAZOSIN [Concomitant]
     Active Substance: TERAZOSIN\TERAZOSIN HYDROCHLORIDE
     Route: 048
     Dates: start: 20110113
  33. GARLIC. [Concomitant]
     Active Substance: GARLIC
     Route: 048
     Dates: start: 20110112
  34. TAMSULOSIN HCL [Concomitant]
     Active Substance: TAMSULOSIN
     Route: 048
     Dates: start: 20150428
  35. PROMETHAZINE [Concomitant]
     Active Substance: PROMETHAZINE\PROMETHAZINE HYDROCHLORIDE
     Dosage: 2 TEASPOONFUL BY MOUTH 4 TIMES A DAY
  36. DOXYCYCLINE HCL [Concomitant]
     Active Substance: DOXYCYCLINE HYDROCHLORIDE
  37. SYNTHROID [Concomitant]
     Active Substance: LEVOTHYROXINE SODIUM
     Route: 048
  38. HERCEPTIN [Concomitant]
     Active Substance: TRASTUZUMAB
     Dates: start: 20060717
  39. SIMVASTATIN. [Concomitant]
     Active Substance: SIMVASTATIN
     Route: 048
     Dates: start: 20110113
  40. LEVITRA [Concomitant]
     Active Substance: VARDENAFIL HYDROCHLORIDE TRIHYDRATE
     Route: 048
     Dates: start: 20110113
  41. CEPHALEXIN. [Concomitant]
     Active Substance: CEPHALEXIN
     Dates: start: 20090805
  42. BYETTA [Suspect]
     Active Substance: EXENATIDE
     Route: 058
     Dates: start: 20070427
  43. QUALAQUIN [Concomitant]
     Active Substance: QUININE SULFATE
     Route: 048
  44. VITAMIN D [Concomitant]
     Active Substance: CHOLECALCIFEROL
     Route: 048
     Dates: start: 20090212
  45. MELATONIN [Concomitant]
     Active Substance: MELATONIN
     Route: 048
     Dates: start: 20150428

REACTIONS (6)
  - Metastases to bone [Unknown]
  - Goitre [Unknown]
  - Follicular thyroid cancer [Unknown]
  - Lung neoplasm malignant [Unknown]
  - Lymphoma [Unknown]
  - Spinal cord neoplasm [Unknown]

NARRATIVE: CASE EVENT DATE: 2010
